FAERS Safety Report 6711372-7 (Version None)
Quarter: 2010Q2

REPORT INFORMATION
  Report Type: 
  Country: None (occurrence: None)
  Receive Date: 20100505
  Receipt Date: 20100425
  Transmission Date: 20101027
  Serious: Yes (Other)
  Sender: FDA-Public Use
  Company Number: GR-PFIZER INC-2010051990

PATIENT
  Sex: Male

DRUGS (1)
  1. VIBRAMYCIN [Suspect]
     Dosage: UNK
     Route: 048
     Dates: start: 20100424

REACTIONS (6)
  - DISCOMFORT [None]
  - DRY MOUTH [None]
  - DYSPHAGIA [None]
  - DYSPNOEA [None]
  - FEELING HOT [None]
  - RASH GENERALISED [None]
